FAERS Safety Report 13515744 (Version 1)
Quarter: 2017Q2

REPORT INFORMATION
  Report Type: Spontaneous
  Country: IT (occurrence: IT)
  Receive Date: 20170504
  Receipt Date: 20170504
  Transmission Date: 20170830
  Serious: Yes (Other)
  Sender: FDA-Public Use
  Company Number: PHHY2017IT063501

PATIENT
  Age: 72 Year
  Sex: Female

DRUGS (1)
  1. LATANOPROST+TIMOLOL SANDOZ [Suspect]
     Active Substance: LATANOPROST\TIMOLOL
     Indication: GLAUCOMA
     Dosage: 2 DRP, QD
     Route: 047
     Dates: start: 20131121, end: 20161230

REACTIONS (2)
  - Keratitis [Recovered/Resolved]
  - Conjunctival hyperaemia [Recovered/Resolved]

NARRATIVE: CASE EVENT DATE: 20160901
